FAERS Safety Report 20978038 (Version 1)
Quarter: 2022Q2

REPORT INFORMATION
  Report Type: Spontaneous
  Country: DE (occurrence: DE)
  Receive Date: 20220618
  Receipt Date: 20220618
  Transmission Date: 20220721
  Serious: Yes (Other)
  Sender: FDA-Public Use
  Company Number: None

PATIENT
  Age: 64 Year
  Sex: Female

DRUGS (13)
  1. FLUOXETINE HYDROCHLORIDE [Suspect]
     Active Substance: FLUOXETINE HYDROCHLORIDE
     Dosage: UNIT DOSE: 20 MG, FREQUENCY : 1 DAYS
     Route: 048
     Dates: start: 20220121, end: 20220410
  2. FLUOXETINE HYDROCHLORIDE [Suspect]
     Active Substance: FLUOXETINE HYDROCHLORIDE
     Dosage: UNIT DOSE: 30 MG, FREQUENCY : 1 DAYS
     Route: 048
     Dates: start: 20211221, end: 20220120
  3. FLUOXETINE HYDROCHLORIDE [Suspect]
     Active Substance: FLUOXETINE HYDROCHLORIDE
     Dosage: UNIT DOSE: 10 MG, FREQUENCY : 1 DAYS
     Route: 048
     Dates: start: 20220411, end: 20220525
  4. FLUOXETINE HYDROCHLORIDE [Suspect]
     Active Substance: FLUOXETINE HYDROCHLORIDE
     Dosage: UNIT DOSE: 20 MG, FREQUENCY : 1 DAYS
     Route: 048
     Dates: start: 20220426
  5. FLUOXETINE HYDROCHLORIDE [Suspect]
     Active Substance: FLUOXETINE HYDROCHLORIDE
     Dosage: 10-30MG/DAY
     Route: 048
     Dates: start: 20210920, end: 20211102
  6. FLUOXETINE HYDROCHLORIDE [Suspect]
     Active Substance: FLUOXETINE HYDROCHLORIDE
     Route: 048
     Dates: start: 20211103, end: 20211220
  7. LITHIUM CARBONATE [Suspect]
     Active Substance: LITHIUM CARBONATE
     Dosage: UNIT DOSE: 675 MG, FREQUENCY : 1 DAYS
     Route: 048
     Dates: start: 20211123, end: 20211207
  8. LITHIUM CARBONATE [Suspect]
     Active Substance: LITHIUM CARBONATE
     Dosage: UNIT DOSE: 225 MG, FREQUENCY : 1 DAYS
     Route: 048
     Dates: start: 20220116, end: 20220407
  9. LITHIUM CARBONATE [Suspect]
     Active Substance: LITHIUM CARBONATE
     Dosage: UNIT DOSE: 450 MG, FREQUENCY : 1 DAYS
     Route: 048
     Dates: start: 20211208, end: 20220115
  10. LITHIUM CARBONATE [Suspect]
     Active Substance: LITHIUM CARBONATE
     Dosage: UNIT DOSE: 450 MG, FREQUENCY : 1 DAYS
     Route: 048
     Dates: start: 20211115, end: 20211122
  11. LITHIUM CARBONATE [Suspect]
     Active Substance: LITHIUM CARBONATE
     Dosage: UNIT DOSE: 225 MG, FREQUENCY : 1 DAYS
     Route: 048
     Dates: start: 20211108, end: 20211114
  12. OLANZAPINE [Concomitant]
     Active Substance: OLANZAPINE
     Dosage: UNIT DOSE: 5 MG, FREQUENCY : 1 DAYS
     Route: 048
     Dates: start: 20211121, end: 20220119
  13. OLANZAPINE [Concomitant]
     Active Substance: OLANZAPINE
     Dosage: UNIT DOSE: 2.5 MG, FREQUENCY : 1 DAYS
     Route: 048
     Dates: start: 20211115, end: 20211118

REACTIONS (10)
  - Weight increased [Not Recovered/Not Resolved]
  - Muscle twitching [Unknown]
  - Breast enlargement [Unknown]
  - Breast pain [Unknown]
  - Increased appetite [Unknown]
  - Neck pain [Unknown]
  - Breast discomfort [Unknown]
  - Food craving [Unknown]
  - Arthralgia [Unknown]
  - Fatigue [Unknown]

NARRATIVE: CASE EVENT DATE: 20211201
